FAERS Safety Report 15359270 (Version 2)
Quarter: 2018Q3

REPORT INFORMATION
  Report Type: Spontaneous
  Country: GB (occurrence: GB)
  Receive Date: 20180907
  Receipt Date: 20180924
  Transmission Date: 20181010
  Serious: Yes (Hospitalization)
  Sender: FDA-Public Use
  Company Number: PHHY2018GB090715

PATIENT
  Age: 49 Year
  Sex: Female
  Weight: 94.6 kg

DRUGS (7)
  1. DEXAMETHASONE. [Concomitant]
     Active Substance: DEXAMETHASONE
     Indication: CHEMOTHERAPY
     Dosage: 8 MG, EVERY 28 DAYS
     Route: 048
     Dates: start: 20180803
  2. ONDANSETRON [Concomitant]
     Active Substance: ONDANSETRON
     Indication: CHEMOTHERAPY
     Dosage: 16 MG, EVERY 28 DAYS
     Route: 048
     Dates: start: 20180803
  3. CAELYX [Suspect]
     Active Substance: DOXORUBICIN HYDROCHLORIDE
     Indication: OVARIAN CANCER
     Dosage: 58 MG, EVERY 28 DAYS
     Route: 042
     Dates: start: 20180803
  4. PARACETAMOL [Concomitant]
     Active Substance: ACETAMINOPHEN
     Indication: NECK PAIN
     Dosage: 1 G, AS NEEDED
     Route: 048
     Dates: start: 20171205
  5. IBUPROFEN. [Concomitant]
     Active Substance: IBUPROFEN
     Indication: NECK PAIN
     Dosage: 200 MG, AS NEEDED
     Route: 048
     Dates: start: 20171216
  6. CARBOPLATIN. [Suspect]
     Active Substance: CARBOPLATIN
     Indication: OVARIAN CANCER
     Dosage: 500 MG,EVERY 28 DAYS
     Route: 042
     Dates: start: 20180803
  7. AVELUMAB [Suspect]
     Active Substance: AVELUMAB
     Indication: OVARIAN CANCER
     Dosage: CYCLE 2 DAY 29 MAINTENANCE, 1 CYCLICAL
     Route: 042
     Dates: start: 20180116, end: 20180522

REACTIONS (3)
  - Pyrexia [Not Recovered/Not Resolved]
  - Neutropenic sepsis [Recovered/Resolved]
  - Vomiting [Not Recovered/Not Resolved]

NARRATIVE: CASE EVENT DATE: 20180817
